FAERS Safety Report 6547819-9 (Version None)
Quarter: 2010Q1

REPORT INFORMATION
  Report Type: 
  Country: None (occurrence: None)
  Receive Date: 20100124
  Receipt Date: 20091015
  Transmission Date: 20100710
  Serious: No
  Sender: FDA-Public Use
  Company Number: CA-ALEXION-A200900842

PATIENT
  Sex: Female

DRUGS (7)
  1. SOLIRIS [Suspect]
     Indication: PAROXYSMAL NOCTURNAL HAEMOGLOBINURIA
     Dosage: 600 MG, QW
     Route: 042
     Dates: start: 20091007, end: 20090101
  2. SOLIRIS [Suspect]
     Dosage: 900 MG, Q2W
     Route: 042
     Dates: start: 20091104
  3. VALTREX [Concomitant]
     Indication: PROPHYLAXIS
     Dosage: UNK
     Route: 048
  4. GRAVOL TAB [Concomitant]
     Indication: NAUSEA
     Dosage: UNK
     Route: 048
  5. FOLIC ACID [Concomitant]
     Dosage: UNK
     Route: 048
  6. VITAMINS                           /90003601/ [Concomitant]
     Indication: VITAMIN SUPPLEMENTATION
     Dosage: UNK
     Route: 048
  7. BIRTH CONTROL [Concomitant]
     Indication: AMENORRHOEA
     Dosage: BACK TO BACK, DAILY
     Route: 048

REACTIONS (8)
  - DIZZINESS POSTURAL [None]
  - FEELING COLD [None]
  - FEELING HOT [None]
  - FLUSHING [None]
  - INFLUENZA LIKE ILLNESS [None]
  - PRURITUS [None]
  - SKIN DISORDER [None]
  - URTICARIA [None]
